FAERS Safety Report 7972007-9 (Version None)
Quarter: 2011Q4

REPORT INFORMATION
  Report Type: 
  Country: None (occurrence: None)
  Receive Date: 20111212
  Receipt Date: 20111026
  Transmission Date: 20120403
  Serious: Yes (Other)
  Sender: FDA-Public Use
  Company Number: US-PFIZER INC-2011261878

PATIENT
  Age: 4 Year
  Sex: Male

DRUGS (2)
  1. BENEFIX [Suspect]
     Indication: FACTOR IX DEFICIENCY
     Dosage: 2000 IU, AS NEEDED
     Dates: start: 20090615, end: 20091010
  2. BENEFIX [Suspect]
     Indication: HAEMORRHAGE

REACTIONS (1)
  - FACTOR IX INHIBITION [None]
